FAERS Safety Report 18069735 (Version 1)
Quarter: 2020Q3

REPORT INFORMATION
  Report Type: Spontaneous
  Country: GB (occurrence: GB)
  Receive Date: 20200727
  Receipt Date: 20200727
  Transmission Date: 20201103
  Serious: Yes (Life-Threatening, Other)
  Sender: FDA-Public Use
  Company Number: GB-AUROBINDO-AUR-APL-2013-04804

PATIENT
  Age: 64 Year

DRUGS (1)
  1. CO?AMOXICLAV 500 MG /125 MG FILM?COATED TABLETS [Suspect]
     Active Substance: AMOXICILLIN\CLAVULANIC ACID
     Indication: INDUCTION OF ANAESTHESIA
     Dosage: 120 MILLIGRAM, ONCE A DAY
     Route: 065

REACTIONS (5)
  - Reperfusion injury [Unknown]
  - Cardiac output decreased [Recovered/Resolved]
  - Anaphylactic reaction [Recovering/Resolving]
  - Bispectral index decreased [Unknown]
  - Cardiac arrest [Recovering/Resolving]
